FAERS Safety Report 4733501-7 (Version None)
Quarter: 2005Q3

REPORT INFORMATION
  Report Type: 
  Country: None (occurrence: None)
  Receive Date: 20050725
  Receipt Date: 20040701
  Transmission Date: 20060218
  Serious: Yes (Death, Other)
  Sender: FDA-Public Use
  Company Number: USA-2003-0011151

PATIENT
  Age: 24 Year
  Sex: Female

DRUGS (12)
  1. MORPHINE SULFATE [Suspect]
  2. HYDROCODONE (HYDROCODONE) [Suspect]
  3. VALPROIC ACID [Suspect]
  4. ACETAMINOPHEN [Suspect]
  5. DIAZEPAM [Suspect]
  6. MEPROBAMATE [Suspect]
  7. TEMAZEPAM [Suspect]
  8. OXAZEPAM [Suspect]
  9. DOXEPIN HCL [Suspect]
  10. CAFFEINE (CAFFEINE) [Suspect]
  11. DIPHENHYDRAMINE HCL [Suspect]
  12. VENLAFAXINE HCL [Suspect]

REACTIONS (2)
  - ACCIDENTAL OVERDOSE [None]
  - DRUG ABUSER [None]
